FAERS Safety Report 5230272-5 (Version None)
Quarter: 2007Q1

REPORT INFORMATION
  Report Type: 
  Country: None (occurrence: None)
  Receive Date: 20070206
  Receipt Date: 20061109
  Transmission Date: 20070707
  Serious: No
  Sender: FDA-Public Use
  Company Number: US-GLAXOSMITHKLINE-A0626870A

PATIENT
  Age: 61 Year
  Sex: Female

DRUGS (3)
  1. PAXIL CR [Suspect]
     Indication: DEPRESSION
     Dosage: 12.5MG PER DAY
     Route: 048
     Dates: start: 20060301, end: 20061101
  2. DIOVAN [Concomitant]
  3. VYTORIN [Concomitant]

REACTIONS (5)
  - DRUG ADMINISTRATION ERROR [None]
  - HOT FLUSH [None]
  - HYPERHIDROSIS [None]
  - PARAESTHESIA ORAL [None]
  - SENSORY DISTURBANCE [None]
